FAERS Safety Report 8914788 (Version 4)
Quarter: 2013Q1

REPORT INFORMATION
  Report Type: Spontaneous
  Country: US (occurrence: US)
  Receive Date: 20121119
  Receipt Date: 20130301
  Transmission Date: 20140127
  Serious: Yes (Hospitalization)
  Sender: FDA-Public Use
  Company Number: US-JNJFOC-20121106217

PATIENT
  Age: 70 Year
  Sex: Female
  Weight: 84.37 kg

DRUGS (2)
  1. RIVAROXABAN [Suspect]
     Indication: THROMBOSIS PROPHYLAXIS
     Route: 048
     Dates: start: 20120711, end: 20120712
  2. RIVAROXABAN [Suspect]
     Indication: KNEE OPERATION
     Route: 048
     Dates: start: 20120711, end: 20120712

REACTIONS (2)
  - Pulmonary embolism [Recovered/Resolved]
  - Haemarthrosis [Recovered/Resolved]
